FAERS Safety Report 12360690 (Version 2)
Quarter: 2016Q3

REPORT INFORMATION
  Report Type: Spontaneous
  Country: US (occurrence: US)
  Receive Date: 20160512
  Receipt Date: 20160920
  Transmission Date: 20161109
  Serious: Yes (Death, Hospitalization)
  Sender: FDA-Public Use
  Company Number: US-ELI_LILLY_AND_COMPANY-US201605002820

PATIENT
  Age: 53 Year
  Sex: Female

DRUGS (2)
  1. ADCIRCA [Suspect]
     Active Substance: TADALAFIL
     Indication: PRODUCT USED FOR UNKNOWN INDICATION
     Dosage: 20 MG, UNKNOWN
     Route: 048
  2. ADCIRCA [Suspect]
     Active Substance: TADALAFIL
     Dosage: 20 MG, 2 PILLS/DAY
     Route: 048
     Dates: start: 20160909

REACTIONS (5)
  - Pneumonia [Unknown]
  - Sickle cell anaemia with crisis [Unknown]
  - Death [Fatal]
  - Infection [Unknown]
  - Hypoxia [Unknown]

NARRATIVE: CASE EVENT DATE: 20160415
